FAERS Safety Report 9146954 (Version 1)
Quarter: 2013Q1

REPORT INFORMATION
  Report Type: Spontaneous
  Country: SI (occurrence: SI)
  Receive Date: 20130307
  Receipt Date: 20130307
  Transmission Date: 20140127
  Serious: Yes (Death)
  Sender: FDA-Public Use
  Company Number: SI-JNJFOC-20130216404

PATIENT
  Sex: Female

DRUGS (5)
  1. XEPLION [Suspect]
     Indication: PRODUCT USED FOR UNKNOWN INDICATION
     Route: 030
     Dates: start: 20120930
  2. ABILIFY [Concomitant]
     Route: 048
  3. TRITTICO [Concomitant]
     Route: 048
  4. CEBION-CALCIUM MED D3-VITAMIN [Concomitant]
     Route: 048
  5. CACO3 [Concomitant]
     Route: 048

REACTIONS (2)
  - Completed suicide [Fatal]
  - Inappropriate schedule of drug administration [Unknown]
